FAERS Safety Report 16371460 (Version 2)
Quarter: 2019Q3

REPORT INFORMATION
  Report Type: Spontaneous
  Country: PL (occurrence: PL)
  Receive Date: 20190530
  Receipt Date: 20190702
  Transmission Date: 20191004
  Serious: Yes (Death)
  Sender: FDA-Public Use
  Company Number: PL-PFIZER INC-2019229147

PATIENT
  Age: 68 Year
  Sex: Female

DRUGS (1)
  1. IBRANCE [Suspect]
     Active Substance: PALBOCICLIB
     Indication: BREAST CANCER
     Dosage: 75 MG, UNK

REACTIONS (2)
  - Neoplasm progression [Unknown]
  - General physical health deterioration [Fatal]
